FAERS Safety Report 13585528 (Version 2)
Quarter: 2017Q2

REPORT INFORMATION
  Report Type: Report from Study
  Country: CO (occurrence: CO)
  Receive Date: 20170526
  Receipt Date: 20170613
  Transmission Date: 20170830
  Serious: Yes (Other)
  Sender: FDA-Public Use
  Company Number: CO-INCYTE CORPORATION-2017IN004136

PATIENT

DRUGS (3)
  1. PROPANOLOL [Concomitant]
     Active Substance: PROPRANOLOL HYDROCHLORIDE
     Indication: PRODUCT USED FOR UNKNOWN INDICATION
     Route: 065
  2. SPIRONOLACTONE. [Concomitant]
     Active Substance: SPIRONOLACTONE
     Indication: PRODUCT USED FOR UNKNOWN INDICATION
     Route: 065
  3. JAKAVI [Suspect]
     Active Substance: RUXOLITINIB
     Indication: MYELOFIBROSIS
     Dosage: 5 MG, QID
     Route: 048
     Dates: start: 20130101

REACTIONS (9)
  - Neoplasm [Unknown]
  - Full blood count decreased [Unknown]
  - Impaired healing [Unknown]
  - Thrombosis [Unknown]
  - Wound [Unknown]
  - Malaise [Unknown]
  - Oesophageal haemorrhage [Unknown]
  - Portal hypertension [Unknown]
  - Platelet count abnormal [Unknown]
